FAERS Safety Report 8419691-3 (Version None)
Quarter: 2012Q2

REPORT INFORMATION
  Report Type: 
  Country: None (occurrence: None)
  Receive Date: 20120607
  Receipt Date: 20120531
  Transmission Date: 20120825
  Serious: Yes (Hospitalization)
  Sender: FDA-Public Use
  Company Number: DE-UCBSA-057756

PATIENT
  Age: 37 Year
  Sex: Male
  Weight: 81.3 kg

DRUGS (3)
  1. PENICILLIN [Concomitant]
     Indication: TONSILLITIS
     Dates: start: 20120502, end: 20120514
  2. CIMZIA [Suspect]
     Indication: PSORIATIC ARTHROPATHY
     Route: 058
     Dates: start: 20110328, end: 20120510
  3. HUMIRA [Concomitant]

REACTIONS (1)
  - MYOCARDITIS [None]
